FAERS Safety Report 13795629 (Version 3)
Quarter: 2017Q4

REPORT INFORMATION
  Report Type: Spontaneous
  Country: US (occurrence: US)
  Receive Date: 20170726
  Receipt Date: 20171025
  Transmission Date: 20180320
  Serious: No
  Sender: FDA-Public Use
  Company Number: US-NEUROCRINE BIOSCIENCES INC.-2017NBI00049

PATIENT
  Age: 36 Year
  Sex: Male
  Weight: 118.04 kg

DRUGS (22)
  1. LITHIUM. [Concomitant]
     Active Substance: LITHIUM
     Dosage: 2 DOSES IN AM AND 3 DOSES IN PM
  2. ZETIA [Concomitant]
     Active Substance: EZETIMIBE
  3. SEROQUEL XR [Concomitant]
     Active Substance: QUETIAPINE FUMARATE
  4. SEROQUEL XR [Concomitant]
     Active Substance: QUETIAPINE FUMARATE
  5. SKELAXIN [Concomitant]
     Active Substance: METAXALONE
  6. NAMENDA XR [Concomitant]
     Active Substance: MEMANTINE HYDROCHLORIDE
  7. SYNTHROID [Concomitant]
     Active Substance: LEVOTHYROXINE SODIUM
  8. INGREZZA [Suspect]
     Active Substance: VALBENAZINE
     Indication: TARDIVE DYSKINESIA
     Route: 048
     Dates: start: 201704, end: 20170507
  9. INGREZZA [Suspect]
     Active Substance: VALBENAZINE
     Route: 048
     Dates: start: 20170508
  10. KLONOPIN [Concomitant]
     Active Substance: CLONAZEPAM
     Dosage: EVERY 4 TO 5 HOURS
  11. SIMVASTATIN. [Concomitant]
     Active Substance: SIMVASTATIN
  12. VITAMIN E [Concomitant]
     Active Substance: .ALPHA.-TOCOPHEROL
  13. SEROQUEL XR [Concomitant]
     Active Substance: QUETIAPINE FUMARATE
     Dates: start: 20170808
  14. LAMICTAL [Concomitant]
     Active Substance: LAMOTRIGINE
  15. NIMODIPINE. [Concomitant]
     Active Substance: NIMODIPINE
  16. TRAZODONE [Concomitant]
     Active Substance: TRAZODONE HYDROCHLORIDE
  17. VITAMIN D [Concomitant]
     Active Substance: CHOLECALCIFEROL
  18. AMLODIPINE [Concomitant]
     Active Substance: AMLODIPINE BESYLATE
  19. AMILORIDE [Concomitant]
     Active Substance: AMILORIDE
  20. DEPAKOTE [Concomitant]
     Active Substance: DIVALPROEX SODIUM
  21. GINGKO BILOBA [Concomitant]
     Active Substance: GINKGO
  22. N-ACETYLCYSTEINE [Concomitant]
     Active Substance: ACETYLCYSTEINE

REACTIONS (4)
  - Somnolence [Not Recovered/Not Resolved]
  - Drug effect decreased [Not Recovered/Not Resolved]
  - Drug ineffective [Not Recovered/Not Resolved]
  - Fatigue [Not Recovered/Not Resolved]

NARRATIVE: CASE EVENT DATE: 2017
